FAERS Safety Report 4534227-5 (Version None)
Quarter: 2004Q4

REPORT INFORMATION
  Report Type: 
  Country: None (occurrence: None)
  Receive Date: 20041214
  Receipt Date: 20040826
  Transmission Date: 20050328
  Serious: No
  Sender: FDA-Public Use
  Company Number: 2004231869US

PATIENT
  Age: 69 Year
  Sex: Female

DRUGS (3)
  1. BEXTRA [Suspect]
     Indication: ARTHRITIS
     Dosage: 20 MG QD ORAL
     Route: 048
     Dates: start: 20040101
  2. MACROGOL [Concomitant]
  3. GLYCOLAX [Concomitant]

REACTIONS (2)
  - BLOOD FOLATE DECREASED [None]
  - ORAL SOFT TISSUE DISORDER [None]
